FAERS Safety Report 7563542-6 (Version None)
Quarter: 2011Q2

REPORT INFORMATION
  Report Type: 
  Country: None (occurrence: None)
  Receive Date: 20110622
  Receipt Date: 20110616
  Transmission Date: 20111010
  Serious: Yes (Death, Hospitalization)
  Sender: FDA-Public Use
  Company Number: GB-TEVA-287331ISR

PATIENT
  Age: 70 Year
  Sex: Female
  Weight: 68 kg

DRUGS (2)
  1. CLOZAPINE [Suspect]
     Indication: SCHIZOPHRENIA
     Route: 048
     Dates: start: 19980901
  2. LEVOTHYROXINE SODIUM [Suspect]
     Route: 048
     Dates: start: 19470101, end: 20011201

REACTIONS (2)
  - BRONCHOPNEUMONIA [None]
  - MYOCARDIAL ISCHAEMIA [None]
